FAERS Safety Report 24010433 (Version 4)
Quarter: 2025Q3

REPORT INFORMATION
  Report Type: Spontaneous
  Country: JP (occurrence: JP)
  Receive Date: 20240625
  Receipt Date: 20250904
  Transmission Date: 20251021
  Serious: Yes (Death, Other)
  Sender: ALEXION PHARMACEUTICALS
  Company Number: 2024A112439

PATIENT
  Age: 86 Year
  Sex: Male
  Weight: 58 kg

DRUGS (24)
  1. ANDEXXA [Suspect]
     Active Substance: ANDEXANET ALFA
     Indication: Subcutaneous haematoma
     Dates: start: 20231029, end: 20231029
  2. EDOXABAN TOSYLATE [Suspect]
     Active Substance: EDOXABAN TOSYLATE
     Indication: Atrial fibrillation
  3. EDOXABAN TOSYLATE [Suspect]
     Active Substance: EDOXABAN TOSYLATE
     Dosage: 30 MILLIGRAM, QD
     Dates: start: 20231101, end: 20231105
  4. OMEPRAZOLE [Concomitant]
     Active Substance: OMEPRAZOLE
     Indication: Duodenal ulcer
     Dates: start: 20231029, end: 20231030
  5. LANSOPRAZOLE [Concomitant]
     Active Substance: LANSOPRAZOLE
     Indication: Duodenal ulcer
     Dates: start: 20231031, end: 20231101
  6. PENTAZOCINE [Concomitant]
     Active Substance: PENTAZOCINE
     Indication: Subcutaneous haematoma
     Dates: start: 20231029, end: 20231030
  7. PENTAZOCINE [Concomitant]
     Active Substance: PENTAZOCINE
     Indication: Spinal cord injury
  8. PENTAZOCINE [Concomitant]
     Active Substance: PENTAZOCINE
     Indication: Cervical vertebral fracture
  9. PENTAZOCINE [Concomitant]
     Active Substance: PENTAZOCINE
     Indication: Wound
  10. CEFTRIAXONE [Concomitant]
     Active Substance: CEFTRIAXONE
     Indication: Pneumonia aspiration
     Dates: start: 20231031, end: 20231104
  11. ACETAMINOPHEN [Concomitant]
     Active Substance: ACETAMINOPHEN
     Indication: Subcutaneous haematoma
     Dates: start: 20231029, end: 20231102
  12. ACETAMINOPHEN [Concomitant]
     Active Substance: ACETAMINOPHEN
     Indication: Wound
  13. ACETAMINOPHEN [Concomitant]
     Active Substance: ACETAMINOPHEN
     Indication: Spinal cord injury
  14. ACETAMINOPHEN [Concomitant]
     Active Substance: ACETAMINOPHEN
     Indication: Cervical vertebral fracture
  15. DIGOXIN [Concomitant]
     Active Substance: DIGOXIN
     Indication: Atrial fibrillation
     Dates: start: 20231101, end: 20231105
  16. ACETAMINOPHEN [Concomitant]
     Active Substance: ACETAMINOPHEN
     Indication: Subcutaneous haematoma
     Dates: start: 20231103, end: 20231105
  17. ACETAMINOPHEN [Concomitant]
     Active Substance: ACETAMINOPHEN
     Indication: Spinal cord injury
  18. ACETAMINOPHEN [Concomitant]
     Active Substance: ACETAMINOPHEN
     Indication: Cervical vertebral fracture
  19. ACETAMINOPHEN [Concomitant]
     Active Substance: ACETAMINOPHEN
     Indication: Wound
  20. AZOSEMIDE [Concomitant]
     Active Substance: AZOSEMIDE
     Indication: Atrial fibrillation
     Dates: start: 20231101, end: 20231105
  21. EPLERENONE [Concomitant]
     Active Substance: EPLERENONE
     Indication: Atrial fibrillation
     Dates: start: 20231101, end: 20231105
  22. BISOPROLOL FUMARATE [Concomitant]
     Active Substance: BISOPROLOL FUMARATE
     Indication: Atrial fibrillation
     Dates: start: 20231031, end: 20231105
  23. VERAPAMIL HYDROCHLORIDE [Concomitant]
     Active Substance: VERAPAMIL HYDROCHLORIDE
     Indication: Atrial fibrillation
     Dates: start: 20231031, end: 20231105
  24. RABEPRAZOLE SODIUM [Concomitant]
     Active Substance: RABEPRAZOLE SODIUM
     Indication: Subcutaneous haematoma
     Dates: start: 20231102, end: 20231105

REACTIONS (5)
  - Sepsis [Fatal]
  - Cerebral infarction [Fatal]
  - Haematochezia [Recovering/Resolving]
  - Renal impairment [Fatal]
  - Pneumonia aspiration [Fatal]

NARRATIVE: CASE EVENT DATE: 20231031
